FAERS Safety Report 16681917 (Version 1)
Quarter: 2019Q3

REPORT INFORMATION
  Report Type: Spontaneous
  Country: US (occurrence: US)
  Receive Date: 20190801
  Receipt Date: 20190801
  Transmission Date: 20191004
  Serious: Yes (Other)
  Sender: FDA-Public Use
  Company Number: None

PATIENT
  Sex: Male

DRUGS (1)
  1. BLT CREAM, BENZOCAINE 20% LIDOCAINE 6% TETRACAINE 4% TOPICAL CREAM, TOPICAL ANESTHETIC [Suspect]
     Active Substance: BENZOCAINE\LIDOCAINE HYDROCHLORIDE\TETRACAINE
     Indication: ERECTILE DYSFUNCTION
     Dosage: ?          QUANTITY:454 G GRAM(S);?
     Route: 061

REACTIONS (2)
  - Application site rash [None]
  - Genital rash [None]

NARRATIVE: CASE EVENT DATE: 20190516
